FAERS Safety Report 8608425-5 (Version None)
Quarter: 2012Q3

REPORT INFORMATION
  Report Type: 
  Country: None (occurrence: None)
  Receive Date: 20120821
  Receipt Date: 20120814
  Transmission Date: 20120928
  Serious: Yes (Death)
  Sender: FDA-Public Use
  Company Number: DE-ACTELION-A-US2012-70221

PATIENT
  Age: 80 Year
  Sex: Female

DRUGS (1)
  1. VENTAVIS [Suspect]
     Indication: PULMONARY ARTERIAL HYPERTENSION
     Dosage: 5 UG, X4-6/DAY
     Route: 055
     Dates: start: 20091110, end: 20120719

REACTIONS (2)
  - PULMONARY ARTERIAL HYPERTENSION [None]
  - INFLAMMATORY PAIN [None]
